FAERS Safety Report 6420774-8 (Version None)
Quarter: 2009Q4

REPORT INFORMATION
  Report Type: 
  Country: None (occurrence: None)
  Receive Date: 20091030
  Receipt Date: 20091019
  Transmission Date: 20100525
  Serious: Yes (Hospitalization)
  Sender: FDA-Public Use
  Company Number: NL-BIOGENIDEC-2009BI032282

PATIENT
  Sex: Female

DRUGS (2)
  1. AVONEX [Suspect]
     Indication: MULTIPLE SCLEROSIS
     Dates: end: 20030101
  2. AVONEX [Suspect]
     Route: 030
     Dates: start: 20091001

REACTIONS (3)
  - MALAISE [None]
  - MOBILITY DECREASED [None]
  - PALLOR [None]
